APPROVED DRUG PRODUCT: METUBINE IODIDE
Active Ingredient: METOCURINE IODIDE
Strength: 2MG/ML
Dosage Form/Route: INJECTABLE;INJECTION
Application: N006632 | Product #003
Applicant: ELI LILLY AND CO
Approved: Approved Prior to Jan 1, 1982 | RLD: No | RS: No | Type: DISCN